FAERS Safety Report 9110087 (Version 2)
Quarter: 2013Q2

REPORT INFORMATION
  Report Type: Spontaneous
  Country: SE (occurrence: SE)
  Receive Date: 20130222
  Receipt Date: 20130403
  Transmission Date: 20140414
  Serious: Yes (Hospitalization)
  Sender: FDA-Public Use
  Company Number: SE-JNJFOC-20130207563

PATIENT
  Age: 68 Year
  Sex: Male

DRUGS (11)
  1. XARELTO [Suspect]
     Indication: THROMBOSIS PROPHYLAXIS
     Route: 048
     Dates: start: 20130128, end: 20130202
  2. TROMBYL [Concomitant]
     Route: 048
  3. FOLACIN [Concomitant]
     Route: 048
  4. PANODIL [Concomitant]
     Route: 048
  5. BISOPROLOL [Concomitant]
     Route: 048
  6. ENALAPRIL [Concomitant]
     Route: 048
  7. OXYNORM [Concomitant]
     Route: 065
  8. OXYCONTIN [Concomitant]
     Route: 048
  9. KETOPROFEN [Concomitant]
     Route: 048
  10. NORSPAN [Concomitant]
     Route: 065
     Dates: start: 20130128
  11. BEHEPAN [Concomitant]
     Route: 048

REACTIONS (2)
  - Post procedural haemorrhage [Not Recovered/Not Resolved]
  - Post procedural swelling [Unknown]
